FAERS Safety Report 11476065 (Version 1)
Quarter: 2015Q3

REPORT INFORMATION
  Report Type: Report from Study
  Country: IN (occurrence: IN)
  Receive Date: 20150909
  Receipt Date: 20150909
  Transmission Date: 20151125
  Serious: Yes (Hospitalization)
  Sender: FDA-Public Use
  Company Number: IN-BAXTER-2014BAX014876

PATIENT
  Age: 73 Year
  Sex: Male

DRUGS (1)
  1. DIANEAL PD-2 PERITONEAL DIALYSIS SOLUTION WITH DEXTROSE [Suspect]
     Active Substance: CALCIUM CHLORIDE\DEXTROSE\MAGNESIUM CHLORIDE\SODIUM CHLORIDE\SODIUM LACTATE
     Indication: PERITONEAL DIALYSIS
     Dosage: 2 BAGS (2 LITERS EACH)
     Route: 033
     Dates: start: 20111213

REACTIONS (5)
  - Blood potassium decreased [Recovered/Resolved]
  - Asthenia [Unknown]
  - Hypotension [Unknown]
  - Infection [Unknown]
  - Diarrhoea [Recovered/Resolved]
